FAERS Safety Report 5799467-6 (Version None)
Quarter: 2008Q3

REPORT INFORMATION
  Report Type: 
  Country: None (occurrence: None)
  Receive Date: 20080703
  Receipt Date: 20080624
  Transmission Date: 20090109
  Serious: No
  Sender: FDA-Public Use
  Company Number: GB-WYE-G01704108

PATIENT
  Sex: Male
  Weight: 69.85 kg

DRUGS (4)
  1. EFFEXOR [Suspect]
     Indication: BIPOLAR DISORDER
     Route: 048
     Dates: start: 19961206
  2. RISPERIDONE [Concomitant]
     Indication: BIPOLAR DISORDER
     Route: 048
     Dates: start: 20050317
  3. PROCYCLIDINE HYDROCHLORIDE 2MG TAB [Concomitant]
     Indication: BIPOLAR DISORDER
     Route: 048
     Dates: start: 20050317
  4. EPILIM [Concomitant]
     Indication: BIPOLAR DISORDER
     Route: 048
     Dates: start: 20040705

REACTIONS (1)
  - DYSMORPHISM [None]
